FAERS Safety Report 22270020 (Version 1)
Quarter: 2023Q2

REPORT INFORMATION
  Report Type: Spontaneous
  Country: US (occurrence: US)
  Receive Date: 20230501
  Receipt Date: 20230501
  Transmission Date: 20230722
  Serious: No
  Sender: FDA-Public Use
  Company Number: US-PFIZER INC-202300170450

PATIENT

DRUGS (1)
  1. PAXLOVID [Suspect]
     Active Substance: NIRMATRELVIR\RITONAVIR
     Indication: COVID-19 treatment
     Dosage: UNK

REACTIONS (8)
  - Dysphonia [Unknown]
  - Throat tightness [Unknown]
  - Lethargy [Unknown]
  - Dizziness [Unknown]
  - Dehydration [Unknown]
  - Mouth swelling [Unknown]
  - Lip swelling [Unknown]
  - Swelling face [Unknown]
